APPROVED DRUG PRODUCT: GALANTAMINE HYDROBROMIDE
Active Ingredient: GALANTAMINE HYDROBROMIDE
Strength: EQ 24MG BASE
Dosage Form/Route: CAPSULE, EXTENDED RELEASE;ORAL
Application: A090178 | Product #003 | TE Code: AB
Applicant: SUN PHARMACEUTICAL INDUSTRIES LTD
Approved: Feb 2, 2011 | RLD: No | RS: No | Type: RX